FAERS Safety Report 10510654 (Version 2)
Quarter: 2014Q4

REPORT INFORMATION
  Report Type: Spontaneous
  Country: US (occurrence: US)
  Receive Date: 20141010
  Receipt Date: 20141010
  Transmission Date: 20150528
  Serious: Yes (Hospitalization)
  Sender: FDA-Public Use
  Company Number: US-AMGEN-USASP2014033044

PATIENT
  Age: 62 Year
  Sex: Female

DRUGS (7)
  1. CYMBALTA [Concomitant]
     Active Substance: DULOXETINE HYDROCHLORIDE
     Indication: ARTHRITIS
  2. AMBIEN CR [Concomitant]
     Active Substance: ZOLPIDEM TARTRATE
  3. PROLIA [Suspect]
     Active Substance: DENOSUMAB
     Indication: PRODUCT USED FOR UNKNOWN INDICATION
     Dosage: UNK
     Route: 065
     Dates: start: 2013
  4. FLEXERIL [Concomitant]
     Active Substance: CYCLOBENZAPRINE HYDROCHLORIDE
     Indication: INSOMNIA
  5. MELOXICAM. [Concomitant]
     Active Substance: MELOXICAM
     Indication: ARTHRITIS
  6. CYMBALTA [Concomitant]
     Active Substance: DULOXETINE HYDROCHLORIDE
     Indication: FIBROMYALGIA
  7. MELOXICAM. [Concomitant]
     Active Substance: MELOXICAM
     Indication: FIBROMYALGIA

REACTIONS (7)
  - Arthralgia [Unknown]
  - Pain in extremity [Unknown]
  - Supraventricular tachycardia [Unknown]
  - Rosacea [Unknown]
  - Antinuclear antibody increased [Unknown]
  - Blood pressure abnormal [Unknown]
  - Myalgia [Unknown]
